FAERS Safety Report 24038756 (Version 3)
Quarter: 2024Q3

REPORT INFORMATION
  Report Type: Other
  Country: CA (occurrence: CA)
  Receive Date: 20240702
  Receipt Date: 20240924
  Transmission Date: 20241017
  Serious: Yes (Other)
  Sender: APOTEX
  Company Number: CA-APOTEX-2024AP007595

PATIENT
  Age: 54 Year
  Sex: Female

DRUGS (3)
  1. LETROZOLE [Suspect]
     Active Substance: LETROZOLE
     Indication: Invasive ductal breast carcinoma
     Dosage: UNK
     Route: 065
  2. STELARA [Suspect]
     Active Substance: USTEKINUMAB
     Indication: Colitis ulcerative
     Dosage: 90 MILLIGRAM, ONCE EVERY 6 WEEKS
     Route: 058
  3. MESALAMINE [Concomitant]
     Active Substance: MESALAMINE
     Indication: Colitis ulcerative
     Dosage: UNK
     Route: 065

REACTIONS (9)
  - Adverse event [Recovering/Resolving]
  - Burnout syndrome [Recovering/Resolving]
  - Colitis ulcerative [Recovering/Resolving]
  - Invasive ductal breast carcinoma [Recovering/Resolving]
  - COVID-19 [Recovering/Resolving]
  - Bronchitis [Recovering/Resolving]
  - Insomnia [Recovering/Resolving]
  - Arthralgia [Recovering/Resolving]
  - Anxiety [Recovering/Resolving]
